FAERS Safety Report 8218191-3 (Version None)
Quarter: 2012Q1

REPORT INFORMATION
  Report Type: 
  Country: None (occurrence: None)
  Receive Date: 20120319
  Receipt Date: 20120309
  Transmission Date: 20120608
  Serious: Yes (Death, Hospitalization, Other)
  Sender: FDA-Public Use
  Company Number: MX-SANOFI-AVENTIS-2012SA016390

PATIENT
  Age: 46 Year
  Sex: Male

DRUGS (5)
  1. LANTUS [Suspect]
     Indication: TYPE 2 DIABETES MELLITUS
     Route: 058
     Dates: start: 20090101
  2. LANTUS [Suspect]
     Dosage: DOSE: 14IU IN MORNING AND 15 IU AT NIGHT
     Route: 058
     Dates: start: 20110101, end: 20110611
  3. GLYBURIDE [Concomitant]
     Indication: TYPE 2 DIABETES MELLITUS
     Route: 048
     Dates: start: 20050101, end: 20110611
  4. METFORMIN HYDROCHLORIDE [Concomitant]
     Indication: TYPE 2 DIABETES MELLITUS
     Route: 048
     Dates: start: 20050101, end: 20110611
  5. ENALAPRIL [Concomitant]
     Route: 048
     Dates: end: 20110611

REACTIONS (5)
  - HYPERTENSION [None]
  - RENAL FAILURE [None]
  - DRUG ADMINISTRATION ERROR [None]
  - MALAISE [None]
  - VARICOSE ULCERATION [None]
